FAERS Safety Report 19367274 (Version 2)
Quarter: 2025Q2

REPORT INFORMATION
  Report Type: Spontaneous
  Country: IT (occurrence: IT)
  Receive Date: 20210602
  Receipt Date: 20250626
  Transmission Date: 20250716
  Serious: Yes (Life-Threatening, Hospitalization)
  Sender: AUROBINDO
  Company Number: IT-MYLANLABS-2021M1032082

PATIENT
  Age: 41 Year
  Sex: Male

DRUGS (8)
  1. AMLODIPINE [Suspect]
     Active Substance: AMLODIPINE BESYLATE
     Indication: Hypertension
     Route: 065
  2. DOXAZOSIN [Suspect]
     Active Substance: DOXAZOSIN MESYLATE
     Indication: Hypertension
     Route: 065
  3. METOPROLOL [Suspect]
     Active Substance: METOPROLOL
     Indication: Hypertension
     Route: 065
  4. EPINEPHRINE [Suspect]
     Active Substance: EPINEPHRINE
     Indication: Blood pressure decreased
     Route: 042
  5. EPINEPHRINE [Suspect]
     Active Substance: EPINEPHRINE
     Indication: Cardiogenic shock
  6. AMIODARONE [Concomitant]
     Active Substance: AMIODARONE
     Indication: Ventricular fibrillation
     Route: 042
  7. LABETALOL [Concomitant]
     Active Substance: LABETALOL
     Indication: Ventricular fibrillation
     Route: 042
  8. URAPIDIL [Concomitant]
     Active Substance: URAPIDIL
     Indication: Ventricular fibrillation
     Route: 065

REACTIONS (5)
  - Condition aggravated [Recovered/Resolved]
  - Stress cardiomyopathy [Recovered/Resolved]
  - Ventricular fibrillation [Recovered/Resolved]
  - Cardiac arrest [Recovered/Resolved]
  - Drug ineffective [Unknown]
